FAERS Safety Report 17137894 (Version 4)
Quarter: 2020Q1

REPORT INFORMATION
  Report Type: Spontaneous
  Country: DE (occurrence: DE)
  Receive Date: 20191211
  Receipt Date: 20200218
  Transmission Date: 20200409
  Serious: Yes (Hospitalization, Other)
  Sender: FDA-Public Use
  Company Number: DE-AUROBINDO-AUR-APL-2019-103461

PATIENT
  Age: 45 Year
  Sex: Male
  Weight: 71 kg

DRUGS (11)
  1. VENLAFAXINE PROLONGED RELEASED CAPSULES [Suspect]
     Active Substance: VENLAFAXINE HYDROCHLORIDE
     Dosage: 225 MILLIGRAM, DAILY (225 AMILLIGRAM, ONCE A DAY TITRATED FROM 37.5 MG/DAY UP TO 225 MG/DAY
     Route: 048
  2. MIRTAZAPINE. [Concomitant]
     Active Substance: MIRTAZAPINE
     Dosage: 30 MILLIGRAM
     Route: 048
     Dates: start: 201501
  3. VENLAFAXINE PROLONGED RELEASED CAPSULES [Suspect]
     Active Substance: VENLAFAXINE HYDROCHLORIDE
     Indication: DEPRESSION
     Dosage: TITRATED FROM 37.5 MG/DAY UP TO 225 MG/DAY
     Route: 065
  4. VENLAFAXINE PROLONGED RELEASED CAPSULES [Suspect]
     Active Substance: VENLAFAXINE HYDROCHLORIDE
     Indication: MAJOR DEPRESSION
     Dosage: 150 MILLIGRAM, DAILY
     Route: 065
  5. LEVOTHYROXINE. [Concomitant]
     Active Substance: LEVOTHYROXINE
     Indication: THYROID HORMONE REPLACEMENT THERAPY
     Dosage: 200 MICROGRAM, DAILY
     Route: 048
     Dates: start: 201201
  6. LEVOTHYROXINE. [Concomitant]
     Active Substance: LEVOTHYROXINE
     Indication: AUTOIMMUNE HYPOTHYROIDISM
  7. MIRTAZAPINE. [Concomitant]
     Active Substance: MIRTAZAPINE
     Indication: MAJOR DEPRESSION
     Dosage: 45 MILLIGRAM, ONCE A DAY AT BEDTIME
     Route: 065
  8. LORAZEPAM. [Concomitant]
     Active Substance: LORAZEPAM
     Dosage: 1 AS NECESSARY
     Route: 065
  9. LORAZEPAM. [Concomitant]
     Active Substance: LORAZEPAM
     Indication: MAJOR DEPRESSION
     Dosage: 0.5 MILLIGRAM, FOUR TIMES/DAY
     Route: 065
  10. VENLAFAXINE PROLONGED RELEASED CAPSULES [Suspect]
     Active Substance: VENLAFAXINE HYDROCHLORIDE
     Dosage: 37.5 MILLIGRAM, DAILY (TITRATED FROM 37.5 MG/DAY UP TO 225 MG/DAY
     Route: 065
  11. LITHIUM. [Concomitant]
     Active Substance: LITHIUM
     Indication: MAJOR DEPRESSION
     Dosage: AT BED TIME, ONCE A DAY
     Route: 065

REACTIONS (9)
  - Toxicity to various agents [Unknown]
  - Feeling jittery [Recovered/Resolved]
  - Anxiety [Recovered/Resolved]
  - Condition aggravated [Recovered/Resolved]
  - Irritability [Recovered/Resolved]
  - Paradoxical drug reaction [Recovered/Resolved]
  - Suicidal ideation [Recovered/Resolved]
  - Hyperhidrosis [Recovered/Resolved]
  - Restlessness [Recovered/Resolved]
